FAERS Safety Report 7060268-2 (Version None)
Quarter: 2010Q4

REPORT INFORMATION
  Report Type: 
  Country: None (occurrence: None)
  Receive Date: 20101025
  Receipt Date: 20101011
  Transmission Date: 20110411
  Serious: Yes (Hospitalization, Disabling)
  Sender: FDA-Public Use
  Company Number: DK-NOVOPROD-316373

PATIENT
  Age: 42 Year
  Sex: Male

DRUGS (3)
  1. ACTRAPID [Suspect]
     Indication: TYPE 1 DIABETES MELLITUS
     Dosage: UNK
     Dates: start: 20041001, end: 20090101
  2. NOVORAPID [Concomitant]
  3. LEVEMIR [Concomitant]

REACTIONS (3)
  - BRAIN HYPOXIA [None]
  - CARDIAC ARREST [None]
  - HYPOGLYCAEMIA [None]
